FAERS Safety Report 10048934 (Version 2)
Quarter: 2014Q2

REPORT INFORMATION
  Report Type: Report from Study
  Country: CA (occurrence: CA)
  Receive Date: 20140331
  Receipt Date: 20140418
  Transmission Date: 20141212
  Serious: Yes (Disabling, Other)
  Sender: FDA-Public Use
  Company Number: CA-ABBVIE-14P-028-1216056-00

PATIENT
  Sex: Male
  Weight: 63.56 kg

DRUGS (1)
  1. HUMIRA [Suspect]
     Indication: CROHN^S DISEASE
     Route: 058
     Dates: start: 20130522, end: 20131218

REACTIONS (3)
  - Enterovesical fistula [Recovered/Resolved]
  - Enterocolonic fistula [Recovered/Resolved]
  - Treatment failure [Unknown]
